FAERS Safety Report 14199127 (Version 3)
Quarter: 2018Q2

REPORT INFORMATION
  Report Type: Report from Study
  Country: NL (occurrence: NL)
  Receive Date: 20171117
  Receipt Date: 20180629
  Transmission Date: 20180711
  Serious: Yes (Hospitalization)
  Sender: FDA-Public Use
  Company Number: PHHY2017NL167195

PATIENT
  Age: 71 Year
  Sex: Male

DRUGS (2)
  1. SANDOSTATINE LAR [Suspect]
     Active Substance: OCTREOTIDE ACETATE
     Indication: NEUROENDOCRINE TUMOUR
     Dosage: 30 MG, BIW
     Route: 030
  2. SANDOSTATINE LAR [Suspect]
     Active Substance: OCTREOTIDE ACETATE
     Dosage: 30 MG/2ML, BIW
     Route: 030
     Dates: start: 20140129

REACTIONS (5)
  - Urinary tract obstruction [Recovering/Resolving]
  - Inappropriate schedule of drug administration [Unknown]
  - International normalised ratio increased [Recovering/Resolving]
  - Urinary bladder haemorrhage [Unknown]
  - Haemorrhage urinary tract [Recovering/Resolving]

NARRATIVE: CASE EVENT DATE: 20171104
